FAERS Safety Report 22008213 (Version 8)
Quarter: 2023Q4

REPORT INFORMATION
  Report Type: Other
  Country: GB (occurrence: GB)
  Receive Date: 20230218
  Receipt Date: 20231027
  Transmission Date: 20240109
  Serious: Yes (Hospitalization)
  Sender: FDA-Public Use
  Company Number: GB-Accord-300249

PATIENT
  Age: 85 Year
  Sex: Male

DRUGS (2)
  1. PIRFENIDONE [Suspect]
     Active Substance: PIRFENIDONE
     Indication: Product used for unknown indication
     Dosage: 3 TABLETS 3 TIMES A DAY
     Route: 048
     Dates: start: 202208, end: 202304
  2. PIRFENIDONE [Suspect]
     Active Substance: PIRFENIDONE
     Route: 048
     Dates: start: 202212

REACTIONS (10)
  - Lower respiratory tract infection [Unknown]
  - Cardiac disorder [Unknown]
  - COVID-19 [Unknown]
  - Decreased appetite [Unknown]
  - Malaise [Unknown]
  - Headache [Unknown]
  - Feeding disorder [Unknown]
  - Drug intolerance [Unknown]
  - Feeling abnormal [Unknown]
  - Weight decreased [Unknown]
